FAERS Safety Report 15509640 (Version 3)
Quarter: 2019Q2

REPORT INFORMATION
  Report Type: Spontaneous
  Country: RU (occurrence: RU)
  Receive Date: 20181016
  Receipt Date: 20190401
  Transmission Date: 20190711
  Serious: Yes (Death, Other)
  Sender: FDA-Public Use
  Company Number: RU-SA-2018SA283086

PATIENT

DRUGS (1)
  1. PLAVIX [Suspect]
     Active Substance: CLOPIDOGREL BISULFATE
     Dosage: 75 MG, UNK
     Route: 048

REACTIONS (3)
  - Vascular stent thrombosis [Fatal]
  - Haemorrhage [Fatal]
  - Counterfeit product administered [Unknown]

NARRATIVE: CASE EVENT DATE: 20181008
